FAERS Safety Report 7479056-8 (Version None)
Quarter: 2011Q2

REPORT INFORMATION
  Report Type: 
  Country: None (occurrence: None)
  Receive Date: 20110504
  Receipt Date: 20110425
  Transmission Date: 20111010
  Serious: Yes (Hospitalization, Other)
  Sender: FDA-Public Use
  Company Number: PD 143

PATIENT
  Age: 45 Year
  Sex: Female

DRUGS (2)
  1. LEVETIRACETAM [Suspect]
     Indication: EPILEPSY
     Dosage: 500MG/TWICE A DAY
  2. METHIMAZOLE [Concomitant]

REACTIONS (6)
  - ACUTE GENERALISED EXANTHEMATOUS PUSTULOSIS [None]
  - PARTIAL SEIZURES [None]
  - RESPIRATORY FAILURE [None]
  - EXFOLIATIVE RASH [None]
  - SEPTIC SHOCK [None]
  - HYPERTHYROIDISM [None]
